FAERS Safety Report 15719341 (Version 1)
Quarter: 2018Q4

REPORT INFORMATION
  Report Type: Spontaneous
  Country: US (occurrence: US)
  Receive Date: 20181213
  Receipt Date: 20181213
  Transmission Date: 20190205
  Serious: Yes (Other)
  Sender: FDA-Public Use
  Company Number: US-ICU MEDICAL, INC.-ICU2018US00218

PATIENT
  Age: 65 Year
  Sex: Female

DRUGS (1)
  1. 20 MEQ POTASSIUM CHLORIDE INJECTION (100 ML) [Suspect]
     Active Substance: POTASSIUM CHLORIDE
     Indication: PRODUCT USED FOR UNKNOWN INDICATION
     Dosage: 100 MILLILITER BAG INJECTABLE
     Route: 042

REACTIONS (1)
  - Extravasation [Unknown]
